FAERS Safety Report 10080786 (Version 1)
Quarter: 2014Q2

REPORT INFORMATION
  Report Type: Report from Study
  Country: US (occurrence: US)
  Receive Date: 20140416
  Receipt Date: 20140416
  Transmission Date: 20141212
  Serious: Yes (Hospitalization)
  Sender: FDA-Public Use
  Company Number: US-ROCHE-1384748

PATIENT
  Age: 50 Year
  Sex: Female

DRUGS (22)
  1. RANIBIZUMAB [Suspect]
     Indication: AGE-RELATED MACULAR DEGENERATION
     Dosage: EYE OS
     Route: 050
     Dates: start: 20130424
  2. RANIBIZUMAB [Suspect]
     Dosage: EYE OS
     Route: 050
     Dates: start: 20130520
  3. RANIBIZUMAB [Suspect]
     Dosage: EYE OS
     Route: 050
     Dates: start: 20130617
  4. RANIBIZUMAB [Suspect]
     Dosage: EYE OS
     Route: 050
     Dates: start: 20130715
  5. RANIBIZUMAB [Suspect]
     Dosage: EYE OS
     Route: 050
     Dates: start: 20130819
  6. RANIBIZUMAB [Suspect]
     Dosage: EYE OS
     Route: 050
     Dates: start: 20130909
  7. RANIBIZUMAB [Suspect]
     Dosage: EYE OS
     Route: 050
     Dates: start: 20131009
  8. RANIBIZUMAB [Suspect]
     Dosage: EYE OS
     Route: 050
     Dates: start: 20131122
  9. RANIBIZUMAB [Suspect]
     Dosage: EYE OS
     Route: 050
     Dates: start: 20140109
  10. RANIBIZUMAB [Suspect]
     Dosage: EYE OS
     Route: 050
     Dates: start: 20140130
  11. VITAMIN D3 [Concomitant]
     Route: 048
  12. PRAVACHOL [Concomitant]
     Route: 048
  13. NOVOLOG [Concomitant]
     Dosage: 22/UNITS
     Route: 058
  14. COZAAR [Concomitant]
     Route: 048
  15. DEPAKOTE [Concomitant]
     Route: 048
  16. METOPROLOL SUCCINATE [Concomitant]
     Route: 048
  17. BENADRYL (UNITED STATES) [Concomitant]
     Route: 048
  18. LANTUS [Concomitant]
     Dosage: 40/UNITS
     Route: 058
  19. ALBUTEROL SULFATE [Concomitant]
     Route: 048
  20. PHENERGAN [Concomitant]
     Route: 048
  21. OFLOXACIN [Concomitant]
     Indication: PROPHYLAXIS
     Dosage: 0.3%/GTT-DROPS TOPICAL-OCULAR
     Route: 065
     Dates: start: 20130424
  22. BESIVANCE [Concomitant]
     Route: 065
     Dates: start: 20130807

REACTIONS (1)
  - Chest pain [Not Recovered/Not Resolved]
